FAERS Safety Report 12948438 (Version 1)
Quarter: 2016Q4

REPORT INFORMATION
  Report Type: Spontaneous
  Country: FR (occurrence: FR)
  Receive Date: 20161116
  Receipt Date: 20161116
  Transmission Date: 20170207
  Serious: Yes (Hospitalization)
  Sender: FDA-Public Use
  Company Number: FR-ABBVIE-16P-056-1782722-00

PATIENT
  Age: 11 Year
  Sex: Female

DRUGS (3)
  1. MICROPAKINE [Suspect]
     Active Substance: VALPROIC ACID
     Route: 048
     Dates: start: 20160122
  2. MICROPAKINE [Suspect]
     Active Substance: VALPROIC ACID
     Route: 048
     Dates: start: 20160121, end: 20160121
  3. MICROPAKINE [Suspect]
     Active Substance: VALPROIC ACID
     Indication: EPILEPSY
     Route: 048
     Dates: start: 20150928

REACTIONS (2)
  - Hallucination [Recovered/Resolved]
  - Agitation [Recovered/Resolved]

NARRATIVE: CASE EVENT DATE: 20160121
